FAERS Safety Report 7357349-2 (Version None)
Quarter: 2011Q1

REPORT INFORMATION
  Report Type: 
  Country: None (occurrence: None)
  Receive Date: 20110308
  Receipt Date: 20110222
  Transmission Date: 20110831
  Serious: Yes (Death)
  Sender: FDA-Public Use
  Company Number: 2011030013

PATIENT
  Age: 31 Year
  Sex: Female

DRUGS (6)
  1. OXYMORPHONE [Suspect]
  2. BUTALBITAL [Suspect]
  3. CYCLOBENZAPRINE HCL [Suspect]
  4. MEPROBAMATE [Suspect]
  5. SOMA [Suspect]
  6. OXYCODONE HCL [Suspect]

REACTIONS (2)
  - ACCIDENTAL DEATH [None]
  - TOXICITY TO VARIOUS AGENTS [None]
